FAERS Safety Report 9702928 (Version 1)
Quarter: 2013Q4

REPORT INFORMATION
  Report Type: Report from Study
  Country: RU (occurrence: RU)
  Receive Date: 20131121
  Receipt Date: 20131121
  Transmission Date: 20140711
  Serious: Yes (Other)
  Sender: FDA-Public Use
  Company Number: RU-ROCHE-1307151

PATIENT
  Sex: 0

DRUGS (3)
  1. CAPECITABINE [Suspect]
     Indication: RECTAL CANCER
     Dosage: 1-21 DAYS
     Route: 065
  2. OXALIPLATIN [Suspect]
     Indication: RECTAL CANCER
     Dosage: DAYS 3, 10, 17.
     Route: 042
  3. METRONIDAZOLE [Suspect]
     Indication: RECTAL CANCER
     Dosage: PER RECTUM DAYS 8, 15
     Route: 065

REACTIONS (4)
  - Diarrhoea [Unknown]
  - Vomiting [Unknown]
  - Proctitis [Unknown]
  - Skin reaction [Unknown]
